FAERS Safety Report 18304536 (Version 1)
Quarter: 2020Q3

REPORT INFORMATION
  Report Type: Spontaneous
  Country: CA (occurrence: CA)
  Receive Date: 20200924
  Receipt Date: 20200924
  Transmission Date: 20201103
  Serious: Yes (Hospitalization)
  Sender: FDA-Public Use
  Company Number: CA-TEVA-2020-CA-1831339

PATIENT
  Age: 50 Year
  Sex: Male

DRUGS (17)
  1. METHYLPREDNISOLONE. [Suspect]
     Active Substance: METHYLPREDNISOLONE
     Route: 065
  2. AMPHOTERICIN B. [Concomitant]
     Active Substance: AMPHOTERICIN B
  3. PIPERACILLIN AND TAZOBACTAM [Concomitant]
     Active Substance: PIPERACILLIN SODIUM\TAZOBACTAM SODIUM
  4. SULFAMETHOXAZOLE AND TRIMETHOPRIM [Concomitant]
     Active Substance: SULFAMETHOXAZOLE\TRIMETHOPRIM
  5. TENOFOVIR DISOPROXIL FUMARATE. [Concomitant]
     Active Substance: TENOFOVIR DISOPROXIL FUMARATE
  6. METHYLPREDNISOLONE. [Suspect]
     Active Substance: METHYLPREDNISOLONE
     Indication: LUNG TRANSPLANT
     Dosage: 375 MILLIGRAM DAILY;
     Route: 042
  7. VALGANCICLOVIR. [Concomitant]
     Active Substance: VALGANCICLOVIR
  8. TACROLIMUS. [Suspect]
     Active Substance: TACROLIMUS
     Route: 065
  9. EMTRICITABINE [Concomitant]
     Active Substance: EMTRICITABINE
  10. CICLOSPORIN [Suspect]
     Active Substance: CYCLOSPORINE
     Indication: IMMUNOSUPPRESSION
     Route: 065
  11. PREDNISONE. [Suspect]
     Active Substance: PREDNISONE
     Indication: LUNG TRANSPLANT
     Route: 048
  12. ITRACONAZOLE. [Concomitant]
     Active Substance: ITRACONAZOLE
  13. AZITHROMYCIN ANHYDROUS. [Concomitant]
     Active Substance: AZITHROMYCIN ANHYDROUS
  14. MYCOPHENOLATE MOFETIL. [Suspect]
     Active Substance: MYCOPHENOLATE MOFETIL
     Indication: LUNG TRANSPLANT
     Dosage: 1000 MILLIGRAM DAILY;
     Route: 042
  15. TACROLIMUS. [Suspect]
     Active Substance: TACROLIMUS
     Indication: LUNG TRANSPLANT
     Dosage: 4 MILLIGRAM DAILY;
     Route: 048
  16. DOLUTEGRAVIR [Concomitant]
     Active Substance: DOLUTEGRAVIR
  17. PREDNISONE. [Suspect]
     Active Substance: PREDNISONE
     Route: 065

REACTIONS (10)
  - Pseudomonas infection [Recovered/Resolved]
  - Product use in unapproved indication [Recovered/Resolved]
  - Pneumonia pneumococcal [Recovered/Resolved]
  - Drug level changed [Recovered/Resolved]
  - Infection [Recovered/Resolved]
  - Dyspnoea [Recovered/Resolved]
  - Obliterative bronchiolitis [Recovered/Resolved]
  - Off label use [Recovered/Resolved]
  - Neuralgia [Recovered/Resolved]
  - Drug ineffective [Recovered/Resolved]
